FAERS Safety Report 9693558 (Version 1)
Quarter: 2013Q4

REPORT INFORMATION
  Report Type: Spontaneous
  Country: NO (occurrence: NO)
  Receive Date: 20131118
  Receipt Date: 20131118
  Transmission Date: 20140711
  Serious: Yes (Hospitalization)
  Sender: FDA-Public Use
  Company Number: NO-GLAXOSMITHKLINE-B0944735A

PATIENT
  Age: 34 Year
  Sex: Female

DRUGS (10)
  1. LAMICTAL [Suspect]
     Indication: BIPOLAR DISORDER
     Dosage: 600MG IN THE MORNING
     Route: 048
     Dates: start: 201204, end: 20130826
  2. FLUNIPAM [Concomitant]
     Indication: INSOMNIA
     Dosage: 1MG AS REQUIRED
     Route: 048
  3. AFIPRAN [Concomitant]
     Indication: NAUSEA
     Dosage: 10MG THREE TIMES PER DAY
     Route: 054
  4. SOBRIL [Concomitant]
     Dosage: 15MG THREE TIMES PER DAY
     Route: 048
  5. ABILIFY [Concomitant]
     Indication: BIPOLAR DISORDER
     Dosage: 10MG IN THE MORNING
     Dates: end: 20130711
  6. LANSOPRAZOLE [Concomitant]
     Indication: GASTRITIS
     Dosage: 30MG PER DAY
  7. NORSPAN [Concomitant]
     Indication: PAIN
     Dosage: 1PAT WEEKLY
     Route: 062
  8. PARACET [Concomitant]
     Indication: ABDOMINAL PAIN
     Dosage: 1G THREE TIMES PER DAY
     Route: 054
  9. RANITIDINE [Concomitant]
     Indication: GASTRITIS
     Dosage: 300MG PER DAY
  10. MOGADON [Concomitant]
     Indication: INSOMNIA
     Dosage: 5MG AS REQUIRED

REACTIONS (5)
  - Visual impairment [Recovered/Resolved]
  - Vision blurred [Recovered/Resolved]
  - Muscular weakness [Recovered/Resolved]
  - Diplopia [Recovered/Resolved]
  - Grand mal convulsion [Recovered/Resolved]
